FAERS Safety Report 5396596-6 (Version None)
Quarter: 2007Q3

REPORT INFORMATION
  Report Type: 
  Country: None (occurrence: None)
  Receive Date: 20070725
  Receipt Date: 20070717
  Transmission Date: 20080115
  Serious: Yes (Hospitalization, Other)
  Sender: FDA-Public Use
  Company Number: US-KINGPHARMUSA00001-K200700900

PATIENT

DRUGS (1)
  1. ALTACE [Suspect]
     Indication: CARDIAC PACEMAKER INSERTION
     Dosage: 10 MG, QD

REACTIONS (4)
  - MUSCLE SPASMS [None]
  - MUSCULOSKELETAL DISCOMFORT [None]
  - MYALGIA [None]
  - PARAESTHESIA [None]
